FAERS Safety Report 9080965 (Version 2)
Quarter: 2013Q1

REPORT INFORMATION
  Report Type: Spontaneous
  Country: US (occurrence: US)
  Receive Date: 20130130
  Receipt Date: 20130201
  Transmission Date: 20140127
  Serious: No
  Sender: FDA-Public Use
  Company Number: US-009507513-1301USA008688

PATIENT
  Sex: Male

DRUGS (4)
  1. ASMANEX TWISTHALER [Suspect]
     Indication: ASTHMA
     Dosage: 2 PUFFS, QD
     Route: 055
     Dates: start: 20130114
  2. PRILOSEC [Concomitant]
  3. FLONASE [Concomitant]
  4. LISINOPRIL [Concomitant]

REACTIONS (1)
  - Headache [Not Recovered/Not Resolved]
